FAERS Safety Report 9298928 (Version 3)
Quarter: 2015Q3

REPORT INFORMATION
  Report Type: Report from Study
  Country: US (occurrence: US)
  Receive Date: 20130520
  Receipt Date: 20150701
  Transmission Date: 20151125
  Serious: Yes (Other)
  Sender: FDA-Public Use
  Company Number: US-SANOFI-AVENTIS-2012SA081701

PATIENT
  Age: 60 Year
  Sex: Female

DRUGS (9)
  1. AVAPRO [Concomitant]
     Active Substance: IRBESARTAN
  2. SOLOSTAR [Concomitant]
     Active Substance: DEVICE
     Indication: TYPE 2 DIABETES MELLITUS
     Dosage: BEFORE MEALS
     Dates: start: 20121001, end: 20150619
  3. LOPRESSOR [Concomitant]
     Active Substance: METOPROLOL TARTRATE
  4. APIDRA SOLOSTAR [Suspect]
     Active Substance: INSULIN GLULISINE
     Indication: TYPE 2 DIABETES MELLITUS
     Dosage: DOSE:5-10 U BEFOR MEALS
     Route: 058
     Dates: start: 20121001, end: 20150619
  5. LANTUS SOLOSTAR [Suspect]
     Active Substance: INSULIN GLARGINE
     Indication: TYPE 2 DIABETES MELLITUS
     Dosage: DOSE:15 UNIT(S)
     Route: 058
     Dates: start: 20121001, end: 20150619
  6. SOLOSTAR [Concomitant]
     Active Substance: DEVICE
     Indication: TYPE 2 DIABETES MELLITUS
     Dates: start: 20121001, end: 20150619
  7. LISINOPRIL. [Concomitant]
     Active Substance: LISINOPRIL
  8. QUINAPRIL [Concomitant]
     Active Substance: QUINAPRIL\QUINAPRIL HYDROCHLORIDE
  9. NORVASC [Concomitant]
     Active Substance: AMLODIPINE BESYLATE

REACTIONS (12)
  - Swelling face [Not Recovered/Not Resolved]
  - Skin hyperpigmentation [Not Recovered/Not Resolved]
  - Bronchitis [Recovering/Resolving]
  - Intermittent claudication [Recovering/Resolving]
  - Condition aggravated [Unknown]
  - Cardiac failure [Recovering/Resolving]
  - Gait disturbance [Recovering/Resolving]
  - Stress [Recovering/Resolving]
  - Pulmonary oedema [Recovering/Resolving]
  - Sinusitis [Recovering/Resolving]
  - Rash erythematous [Not Recovered/Not Resolved]
  - Blood glucose increased [Not Recovered/Not Resolved]

NARRATIVE: CASE EVENT DATE: 201210
